FAERS Safety Report 10463874 (Version 1)
Quarter: 2014Q3

REPORT INFORMATION
  Report Type: Spontaneous
  Country: US (occurrence: US)
  Receive Date: 20140919
  Receipt Date: 20140919
  Transmission Date: 20150326
  Serious: Yes (Life-Threatening, Hospitalization)
  Sender: FDA-Public Use
  Company Number: PHEH2014US018588

PATIENT
  Sex: Male

DRUGS (2)
  1. CLOZAPINE. [Suspect]
     Active Substance: CLOZAPINE
     Dosage: UNK UKN, UNK
  2. KLONOPIN [Suspect]
     Active Substance: CLONAZEPAM
     Dosage: UNK UKN, UNK

REACTIONS (1)
  - Suicidal ideation [Unknown]
